FAERS Safety Report 6135301-2 (Version None)
Quarter: 2009Q1

REPORT INFORMATION
  Report Type: 
  Country: None (occurrence: None)
  Receive Date: 20090327
  Receipt Date: 20090316
  Transmission Date: 20090719
  Serious: Yes (Death)
  Sender: FDA-Public Use
  Company Number: JP-ELI_LILLY_AND_COMPANY-JP200901002766

PATIENT
  Sex: Female
  Weight: 38 kg

DRUGS (10)
  1. ZYPREXA [Suspect]
     Indication: DEPRESSION
     Dosage: 10 MG, DAILY (1/D)
     Route: 048
     Dates: start: 20081209, end: 20081215
  2. ZYPREXA [Suspect]
     Dosage: 2.5 MG, DAILY (1/D)
     Route: 048
     Dates: start: 20081216, end: 20081223
  3. ZYPREXA [Suspect]
     Dosage: 10 MG, DAILY (1/D)
     Route: 048
     Dates: start: 20081224
  4. OLMETEC [Concomitant]
     Dosage: 5 MG, DAILY (1/D)
     Route: 048
     Dates: end: 20081223
  5. AMLODIN [Concomitant]
     Dosage: 2.5 MG, DAILY (1/D)
     Route: 048
  6. SENNOSIDE [Concomitant]
     Dosage: 12 MG, DAILY (1/D)
     Route: 048
     Dates: end: 20081223
  7. RHYTHMY [Concomitant]
     Dosage: 1 MG, DAILY (1/D)
     Route: 048
     Dates: end: 20081223
  8. PURSENNID [Concomitant]
     Dosage: 12 MG, DAILY (1/D)
     Route: 048
     Dates: start: 20081224
  9. BIO THREE [Concomitant]
     Dosage: 1 G, 3/D
     Route: 048
     Dates: start: 20081224, end: 20090106
  10. OMEPRAZOLE [Concomitant]
     Dosage: 10 MG, DAILY (1/D)
     Route: 048
     Dates: start: 20090107

REACTIONS (2)
  - CARDIAC ARREST [None]
  - RESPIRATORY ARREST [None]
